FAERS Safety Report 4906772-1 (Version None)
Quarter: 2006Q1

REPORT INFORMATION
  Report Type: 
  Country: None (occurrence: None)
  Receive Date: 20060207
  Receipt Date: 20060124
  Transmission Date: 20060701
  Serious: Yes (Other)
  Sender: FDA-Public Use
  Company Number: DE200601004506

PATIENT
  Sex: Male

DRUGS (1)
  1. XIGRIS (DROTREOCOGIN ALFA (ACTIVATED)) VIAL [Suspect]
     Dosage: 24 UG/KG/HR,
     Dates: start: 20060123, end: 20060124

REACTIONS (1)
  - THROMBOCYTOPENIA [None]
